FAERS Safety Report 10786130 (Version 1)
Quarter: 2015Q1

REPORT INFORMATION
  Report Type: Report from Study
  Country: US (occurrence: US)
  Receive Date: 20150211
  Receipt Date: 20150211
  Transmission Date: 20150721
  Serious: Yes (Hospitalization, Other)
  Sender: FDA-Public Use
  Company Number: US-009507513-1502USA003050

PATIENT
  Age: 15 Year
  Sex: Male
  Weight: 76.3 kg

DRUGS (16)
  1. HEXADROL [Suspect]
     Active Substance: DEXAMETHASONE
     Dosage: COURSE A: 5 MG/M2, BID ON DAYS 1-5
     Route: 048
     Dates: start: 20131211
  2. CYCLOPHOSPHAMIDE. [Suspect]
     Active Substance: CYCLOPHOSPHAMIDE
     Dosage: COURSE B: 200 MG/M2, OVER 30-60 MIN ON DAYS1-5
     Route: 042
     Dates: end: 20140406
  3. HEXADROL [Suspect]
     Active Substance: DEXAMETHASONE
     Indication: ANAPLASTIC LARGE CELL LYMPHOMA T- AND NULL-CELL TYPES
     Dosage: PROPHASE:5 MG/M2, QD, ON DAYS 1-2
     Route: 048
     Dates: start: 20131206
  4. HEXADROL [Suspect]
     Active Substance: DEXAMETHASONE
     Dosage: COURSE B: 5 MG/M2, BID ON DAYS 1-5
     Route: 048
     Dates: end: 20140406
  5. DOXORUBICIN HYDROCHLORIDE. [Suspect]
     Active Substance: DOXORUBICIN HYDROCHLORIDE
     Indication: ANAPLASTIC LARGE CELL LYMPHOMA T- AND NULL-CELL TYPES
     Dosage: COURSE B: 25 MG/M2, OVER 1-15 MIN ON DAY 4 AND 5
     Route: 042
     Dates: end: 20140406
  6. METHOTREXATE [Suspect]
     Active Substance: METHOTREXATE
     Indication: ANAPLASTIC LARGE CELL LYMPHOMA T- AND NULL-CELL TYPES
     Dosage: PROPHASE: 7.5 TO 12 MG ON DAY 1 (AGE BASED DOSING)
     Route: 037
     Dates: start: 20131206
  7. METHOTREXATE [Suspect]
     Active Substance: METHOTREXATE
     Dosage: COURSE B: 3000 MG/M2, OVER 3 HOURS ON DAY 1
     Route: 042
     Dates: end: 20140402
  8. CYTARABINE. [Suspect]
     Active Substance: CYTARABINE
     Dosage: COURSE A: 150MG/M2, OVER 1 HOUR EVERY 12 HOURS ON DAYS 4 AND 5 (TOTAL 4 DOSES)
     Route: 042
     Dates: start: 20131211, end: 20140316
  9. HEXADROL [Suspect]
     Active Substance: DEXAMETHASONE
     Dosage: PROPHASE: 5 MG/M2, BID ON DAYS 3-5
     Route: 048
     Dates: start: 20131208
  10. ETOPOSIDE. [Suspect]
     Active Substance: ETOPOSIDE
     Indication: ANAPLASTIC LARGE CELL LYMPHOMA T- AND NULL-CELL TYPES
     Dosage: COURSE A: 100 MG/M2, OVER 2 HOURS ON DAYS 4 AND 5
     Route: 042
     Dates: start: 20131211, end: 20140316
  11. CRIZOTINIB [Suspect]
     Active Substance: CRIZOTINIB
     Dosage: COURSE B: 165 MG/M2, BID, ON DAYS 1-21
     Route: 048
     Dates: end: 20140420
  12. CYCLOPHOSPHAMIDE. [Suspect]
     Active Substance: CYCLOPHOSPHAMIDE
     Indication: ANAPLASTIC LARGE CELL LYMPHOMA T- AND NULL-CELL TYPES
     Dosage: PROPHASE: 200 MG/M2,OVER 30-60 MIN ON DAYS 1 AND 2
     Route: 042
     Dates: start: 20131206
  13. METHOTREXATE [Suspect]
     Active Substance: METHOTREXATE
     Dosage: COURSE A: 3000 MG/M2, OVER 3 HOURS ON DAY 1
     Route: 042
     Dates: start: 20131211, end: 20140402
  14. CRIZOTINIB [Suspect]
     Active Substance: CRIZOTINIB
     Indication: ANAPLASTIC LARGE CELL LYMPHOMA T- AND NULL-CELL TYPES
     Dosage: COURSE A: 165 MG/M2,  BID, ON DAYS 1-21
     Route: 048
     Dates: start: 20131211
  15. IFOSFAMIDE. [Suspect]
     Active Substance: IFOSFAMIDE
     Indication: ANAPLASTIC LARGE CELL LYMPHOMA T- AND NULL-CELL TYPES
     Dosage: COURSE A: 800 MG/M2, OVER 60 MIN ON DAYS 1-5
     Route: 042
     Dates: start: 20131211, end: 20140316
  16. CYTARABINE. [Suspect]
     Active Substance: CYTARABINE
     Indication: ANAPLASTIC LARGE CELL LYMPHOMA T- AND NULL-CELL TYPES
     Dosage: PROPHASE: 15-24MG ON DAY 1 (AGE BASED DOSING)
     Route: 037
     Dates: start: 20131206

REACTIONS (10)
  - White blood cell count decreased [Recovered/Resolved]
  - Hypokalaemia [Recovered/Resolved]
  - Platelet count decreased [Recovered/Resolved]
  - Embolism [Recovered/Resolved]
  - Dehydration [Recovered/Resolved]
  - Hypoalbuminaemia [Recovered/Resolved]
  - Lung infection [Recovered/Resolved]
  - Diarrhoea [Recovered/Resolved]
  - Stomatitis [Recovered/Resolved]
  - Febrile neutropenia [Recovered/Resolved]

NARRATIVE: CASE EVENT DATE: 20140408
